FAERS Safety Report 24562521 (Version 1)
Quarter: 2024Q4

REPORT INFORMATION
  Report Type: Spontaneous
  Country: FR (occurrence: FR)
  Receive Date: 20241029
  Receipt Date: 20241029
  Transmission Date: 20250115
  Serious: Yes (Other)
  Sender: FENNEC PHARMACEUTICALS
  Company Number: FR-FENNEC PHARMACEUTICALS, INC.-2024FEN00052

PATIENT

DRUGS (2)
  1. SODIUM THIOSULFATE [Suspect]
     Active Substance: SODIUM THIOSULFATE
     Indication: Ototoxicity
     Dosage: UNK
     Route: 065
  2. CISPLATIN [Concomitant]
     Active Substance: CISPLATIN

REACTIONS (1)
  - Hepatoblastoma [Unknown]
